FAERS Safety Report 7121873-8 (Version None)
Quarter: 2010Q4

REPORT INFORMATION
  Report Type: 
  Country: None (occurrence: None)
  Receive Date: 20101124
  Receipt Date: 20101116
  Transmission Date: 20110411
  Serious: Yes (Hospitalization)
  Sender: FDA-Public Use
  Company Number: JP-ROCHE-742464

PATIENT
  Sex: Female
  Weight: 64 kg

DRUGS (6)
  1. PEGINTERFERON ALFA-2A [Suspect]
     Indication: HEPATITIS C
     Dosage: DOSE DECREASED
     Route: 058
     Dates: start: 20100706, end: 20100719
  2. PEGINTERFERON ALFA-2A [Suspect]
     Dosage: DOSE DECREASED
     Route: 058
     Dates: start: 20100720, end: 20100726
  3. PEGINTERFERON ALFA-2A [Suspect]
     Dosage: DISCONTINUED
     Route: 058
     Dates: start: 20100727, end: 20100921
  4. PEGINTERFERON ALFA-2A [Suspect]
     Dosage: DISCONTINUED
     Route: 058
     Dates: start: 20101026, end: 20101026
  5. RIBAVIRIN [Suspect]
     Indication: HEPATITIS C
     Route: 048
     Dates: start: 20100706, end: 20100921
  6. VOLTAREN [Concomitant]
     Dosage: PROPER ADMINISTERING
     Route: 054

REACTIONS (3)
  - CHEST DISCOMFORT [None]
  - INTESTINAL OBSTRUCTION [None]
  - PLATELET COUNT DECREASED [None]
